FAERS Safety Report 23379294 (Version 1)
Quarter: 2024Q1

REPORT INFORMATION
  Report Type: Spontaneous
  Country: CA (occurrence: CA)
  Receive Date: 20240108
  Receipt Date: 20240108
  Transmission Date: 20240409
  Serious: Yes (Hospitalization)
  Sender: FDA-Public Use
  Company Number: CA-TEVA-VS-3134376

PATIENT
  Age: 49 Year

DRUGS (1)
  1. AJOVY [Suspect]
     Active Substance: FREMANEZUMAB-VFRM
     Indication: Migraine prophylaxis
     Route: 058
     Dates: start: 20231120

REACTIONS (8)
  - Hypersensitivity [Unknown]
  - Palpitations [Unknown]
  - Injection site pain [Unknown]
  - Dyspnoea [Unknown]
  - Throat irritation [Unknown]
  - Injection site erythema [Unknown]
  - Dizziness [Unknown]
  - Headache [Unknown]
